FAERS Safety Report 8190789-0 (Version None)
Quarter: 2012Q1

REPORT INFORMATION
  Report Type: 
  Country: None (occurrence: None)
  Receive Date: 20120307
  Receipt Date: 20120229
  Transmission Date: 20120608
  Serious: Yes (Life-Threatening, Other)
  Sender: FDA-Public Use
  Company Number: RU-TEVA-325833USA

PATIENT
  Age: 60 Year
  Sex: Female

DRUGS (2)
  1. DEXAMETHASONE [Concomitant]
     Indication: PREMEDICATION
     Dates: start: 20111213, end: 20111213
  2. BENDAMUSTINE [Suspect]
     Indication: MULTIPLE MYELOMA
     Route: 042
     Dates: start: 20110101, end: 20111213

REACTIONS (2)
  - RASH MACULAR [None]
  - LARYNGOSPASM [None]
